FAERS Safety Report 13755842 (Version 3)
Quarter: 2017Q4

REPORT INFORMATION
  Report Type: Report from Study
  Country: BR (occurrence: BR)
  Receive Date: 20170714
  Receipt Date: 20171212
  Transmission Date: 20180320
  Serious: Yes (Other)
  Sender: FDA-Public Use
  Company Number: PHHY2017BR104205

PATIENT
  Age: 71 Year
  Sex: Female
  Weight: 83 kg

DRUGS (3)
  1. ACLASTA [Suspect]
     Active Substance: ZOLEDRONIC ACID
     Indication: OSTEOPOROSIS
     Dosage: 1 DF, Q12MO
     Route: 042
     Dates: start: 20161010
  2. ACLASTA [Suspect]
     Active Substance: ZOLEDRONIC ACID
     Dosage: 1 DF, Q12MO
     Route: 042
     Dates: start: 20171120
  3. PURAN [Concomitant]
     Active Substance: LEVOTHYROXINE SODIUM
     Indication: THYROID MASS
     Dosage: 112 MG, SINCE 36 YEARS OLD
     Route: 048

REACTIONS (14)
  - Asthenia [Recovering/Resolving]
  - Eating disorder [Recovering/Resolving]
  - Arrhythmia [Recovered/Resolved]
  - Visual impairment [Unknown]
  - Pain [Recovered/Resolved]
  - Dizziness [Unknown]
  - Eye disorder [Recovering/Resolving]
  - Retching [Recovering/Resolving]
  - Liver disorder [Recovering/Resolving]
  - Syncope [Recovering/Resolving]
  - Corneal disorder [Unknown]
  - Insomnia [Recovering/Resolving]
  - Nausea [Unknown]
  - Skin discolouration [Recovering/Resolving]

NARRATIVE: CASE EVENT DATE: 20161011
